FAERS Safety Report 7109264-7 (Version None)
Quarter: 2010Q4

REPORT INFORMATION
  Report Type: 
  Country: None (occurrence: None)
  Receive Date: 20101117
  Receipt Date: 20101108
  Transmission Date: 20110411
  Serious: Yes (Hospitalization)
  Sender: FDA-Public Use
  Company Number: US-ASTRAZENECA-2010SE52814

PATIENT
  Age: 84 Year
  Sex: Male

DRUGS (1)
  1. ZESTRIL [Suspect]
     Indication: BLOOD PRESSURE
     Route: 048
     Dates: start: 20000101

REACTIONS (1)
  - PERICARDIAL EFFUSION [None]
